FAERS Safety Report 6463209-1 (Version None)
Quarter: 2009Q4

REPORT INFORMATION
  Report Type: 
  Country: None (occurrence: None)
  Receive Date: 20091123
  Receipt Date: 20091113
  Transmission Date: 20100525
  Serious: Yes (Disabling)
  Sender: FDA-Public Use
  Company Number: 2009SP036329

PATIENT
  Age: 32 Year
  Sex: Female

DRUGS (3)
  1. DIPROSPAN (BETAMETHASONE SODIUM PHOSPHATE/DIPROPIONATE) (BETAMETHASONE [Suspect]
     Indication: PAIN IN EXTREMITY
     Dates: start: 20060524
  2. DEPO-MEDROL [Suspect]
     Indication: PAIN IN EXTREMITY
     Dates: start: 20061005
  3. LIDOCAINE [Concomitant]

REACTIONS (9)
  - ABASIA [None]
  - CONDITION AGGRAVATED [None]
  - DISCOMFORT [None]
  - DRUG EFFECT DECREASED [None]
  - GAIT DISTURBANCE [None]
  - INJURY [None]
  - PAIN IN EXTREMITY [None]
  - SKIN ATROPHY [None]
  - TENDERNESS [None]
